FAERS Safety Report 24569624 (Version 1)
Quarter: 2024Q4

REPORT INFORMATION
  Report Type: Spontaneous
  Country: US (occurrence: None)
  Receive Date: 20241031
  Receipt Date: 20241031
  Transmission Date: 20250115
  Serious: Yes (Hospitalization)
  Sender: Public
  Company Number: None

PATIENT
  Age: 66 Year
  Sex: Female

DRUGS (3)
  1. XALKORI [Suspect]
     Active Substance: CRIZOTINIB
     Indication: Abdominal pain
     Route: 048
     Dates: start: 20180104
  2. LASIX [Concomitant]
     Active Substance: FUROSEMIDE
  3. METOPROLOL [Concomitant]
     Active Substance: METOPROLOL

REACTIONS (1)
  - Sepsis [None]

NARRATIVE: CASE EVENT DATE: 20240922
